FAERS Safety Report 23271765 (Version 1)
Quarter: 2023Q4

REPORT INFORMATION
  Report Type: Spontaneous
  Country: CA (occurrence: CA)
  Receive Date: 20231207
  Receipt Date: 20231207
  Transmission Date: 20240110
  Serious: Yes (Other)
  Sender: FDA-Public Use
  Company Number: CA-PFIZER INC-2021424061

PATIENT
  Age: 46 Year
  Sex: Female

DRUGS (2)
  1. XELJANZ [Suspect]
     Active Substance: TOFACITINIB CITRATE
     Indication: Psoriatic arthropathy
     Dosage: 5 MG, 2X/DAY
     Route: 048
     Dates: start: 20201115
  2. XELJANZ [Suspect]
     Active Substance: TOFACITINIB CITRATE
     Dosage: 5 MG, DAILY
     Route: 048

REACTIONS (12)
  - Diabetes mellitus inadequate control [Unknown]
  - Sensitivity to weather change [Unknown]
  - Pain [Unknown]
  - Epistaxis [Unknown]
  - Migraine [Unknown]
  - Skin infection [Not Recovered/Not Resolved]
  - Cyst [Unknown]
  - Infection [Not Recovered/Not Resolved]
  - Treatment noncompliance [Unknown]
  - Therapeutic product effect incomplete [Unknown]
  - Product dose omission in error [Unknown]
  - Off label use [Unknown]
